FAERS Safety Report 17081700 (Version 2)
Quarter: 2021Q4

REPORT INFORMATION
  Report Type: Spontaneous
  Country: US (occurrence: US)
  Receive Date: 20191127
  Receipt Date: 20211129
  Transmission Date: 20220303
  Serious: No
  Sender: FDA-Public Use
  Company Number: US-UCBSA-2018056447

PATIENT
  Sex: Male
  Weight: 26 kg

DRUGS (5)
  1. VIMPAT [Suspect]
     Active Substance: LACOSAMIDE
     Indication: Product used for unknown indication
     Dosage: TOTAL DAILY DOSE OF 260 MG
  2. VIMPAT [Suspect]
     Active Substance: LACOSAMIDE
     Dosage: 30 MG IN MORNING, 30 MG IN AFTERNOON, AND 100 MG AT NIGHT (, 3X/DAY (TID)
  3. BACLOFEN [Concomitant]
     Active Substance: BACLOFEN
     Indication: Cerebral palsy
     Dosage: 20 MG, 2X/DAY (BID)
  4. ZANTAC [Concomitant]
     Active Substance: RANITIDINE HYDROCHLORIDE
     Indication: Product used for unknown indication
     Dosage: 75 MG, 2X/DAY (BID)
  5. DIASTAT [Concomitant]
     Active Substance: DIAZEPAM
     Indication: Product used for unknown indication
     Dosage: 10 MG, AS NEEDED (PRN)
     Route: 054

REACTIONS (6)
  - Anger [Not Recovered/Not Resolved]
  - Headache [Not Recovered/Not Resolved]
  - Unevaluable event [Not Recovered/Not Resolved]
  - Bruxism [Not Recovered/Not Resolved]
  - Screaming [Not Recovered/Not Resolved]
  - Intentional product misuse [Unknown]
